FAERS Safety Report 6536352-6 (Version None)
Quarter: 2010Q1

REPORT INFORMATION
  Report Type: 
  Country: None (occurrence: None)
  Receive Date: 20100106
  Receipt Date: 20091221
  Transmission Date: 20100710
  Serious: Yes (Hospitalization)
  Sender: FDA-Public Use
  Company Number: TRP_06672_2009

PATIENT
  Sex: Female

DRUGS (11)
  1. RIBAVIRIN [Suspect]
     Indication: HEPATITIS C
     Dosage: (1000 MG, DIALY), (800 MG, DAILY)
     Dates: start: 20090206, end: 20090101
  2. RIBAVIRIN [Suspect]
     Indication: HEPATITIS C
     Dosage: (1000 MG, DIALY), (800 MG, DAILY)
     Dates: start: 20090101
  3. PEGASYS [Suspect]
     Indication: HEPATITIS C
     Dosage: (180 UG 1X/WEEK), (135 UG 1X/WEEK)
     Dates: start: 20090206, end: 20090101
  4. PEGASYS [Suspect]
     Indication: HEPATITIS C
     Dosage: (180 UG 1X/WEEK), (135 UG 1X/WEEK)
     Dates: start: 20090101
  5. KAPIDEX [Suspect]
     Indication: DRUG USE FOR UNKNOWN INDICATION
     Dosage: (DF)
     Dates: start: 20090719
  6. WELLBUTRIN [Concomitant]
  7. TRAMADOL [Concomitant]
  8. SPIRONOLACTONE [Concomitant]
  9. FUROSEMIDE [Concomitant]
  10. LACTULOSE [Concomitant]
  11. CARISOPRODOL [Concomitant]

REACTIONS (18)
  - AMMONIA INCREASED [None]
  - ARTHRITIS [None]
  - BALANCE DISORDER [None]
  - BLOOD POTASSIUM DECREASED [None]
  - CHEST DISCOMFORT [None]
  - DYSSTASIA [None]
  - FALL [None]
  - GASTROINTESTINAL BACTERIAL INFECTION [None]
  - GASTROINTESTINAL INFLAMMATION [None]
  - INSOMNIA [None]
  - MEMORY IMPAIRMENT [None]
  - OROPHARYNGEAL PAIN [None]
  - PANCREATIC ENZYMES NORMAL [None]
  - PRURITUS [None]
  - PYREXIA [None]
  - RASH [None]
  - TREMOR [None]
  - VARICES OESOPHAGEAL [None]
